FAERS Safety Report 9386462 (Version 1)
Quarter: 2013Q3

REPORT INFORMATION
  Report Type: Spontaneous
  Country: US (occurrence: US)
  Receive Date: 20130708
  Receipt Date: 20130708
  Transmission Date: 20140515
  Serious: No
  Sender: FDA-Public Use
  Company Number: US-BIOGENIDEC-2013BI060327

PATIENT
  Sex: Female

DRUGS (2)
  1. AVONEX [Suspect]
     Indication: MULTIPLE SCLEROSIS
     Route: 030
     Dates: start: 20121210
  2. METHOTREXATE [Concomitant]
     Indication: RHEUMATOID ARTHRITIS
     Route: 048

REACTIONS (4)
  - Stomatitis [Not Recovered/Not Resolved]
  - Local swelling [Unknown]
  - Oral mucosal blistering [Not Recovered/Not Resolved]
  - Pain in extremity [Unknown]
